FAERS Safety Report 8151274-5 (Version None)
Quarter: 2012Q1

REPORT INFORMATION
  Report Type: 
  Country: None (occurrence: None)
  Receive Date: 20120220
  Receipt Date: 20120216
  Transmission Date: 20120608
  Serious: No
  Sender: FDA-Public Use
  Company Number: US-BAYER-2012-016182

PATIENT
  Sex: Male

DRUGS (8)
  1. PRILOSEC [Concomitant]
  2. GAS-X [Concomitant]
  3. MULTI-VITAMIN [Concomitant]
  4. AMITRIPTYLINE HCL [Concomitant]
  5. COUMADIN [Concomitant]
  6. FISH OIL [Concomitant]
  7. STAXYN [Suspect]
     Indication: ERECTILE DYSFUNCTION
     Dosage: UNK
     Route: 048
     Dates: start: 20120213, end: 20120213
  8. NIACIN [Concomitant]

REACTIONS (2)
  - POLLAKIURIA [None]
  - CYSTITIS INTERSTITIAL [None]
